FAERS Safety Report 5135380-5 (Version None)
Quarter: 2006Q4

REPORT INFORMATION
  Report Type: 
  Country: None (occurrence: None)
  Receive Date: 20061026
  Receipt Date: 20061004
  Transmission Date: 20070319
  Serious: Yes (Hospitalization)
  Sender: FDA-Public Use
  Company Number: AU-BRISTOL-MYERS SQUIBB COMPANY-13529839

PATIENT
  Age: 40 Year
  Sex: Female

DRUGS (5)
  1. KARVEA [Suspect]
     Route: 048
     Dates: start: 20060929
  2. ARAVA [Suspect]
     Indication: RHEUMATOID ARTHRITIS
     Route: 048
  3. ACTONEL [Concomitant]
     Indication: OSTEOPOROSIS
     Dosage: DOSAGE:1 TABLET WEEKLY.
     Dates: start: 20060105
  4. PREDNISONE TAB [Concomitant]
  5. MOBIC [Concomitant]
     Indication: RHEUMATOID ARTHRITIS
     Route: 048

REACTIONS (1)
  - GRAND MAL CONVULSION [None]
